FAERS Safety Report 7417577-4 (Version None)
Quarter: 2011Q2

REPORT INFORMATION
  Report Type: 
  Country: None (occurrence: None)
  Receive Date: 20110415
  Receipt Date: 20110404
  Transmission Date: 20111010
  Serious: Yes (Other)
  Sender: FDA-Public Use
  Company Number: PHHY2011BR27530

PATIENT
  Sex: Female

DRUGS (1)
  1. SANDOSTATIN LAR [Suspect]
     Indication: NEUROENDOCRINE TUMOUR
     Dosage: 30 MG EVERY 28 DAYS

REACTIONS (3)
  - HYPOTHYROIDISM [None]
  - THYROXINE FREE INCREASED [None]
  - BLOOD THYROID STIMULATING HORMONE DECREASED [None]
